FAERS Safety Report 9419878 (Version 3)
Quarter: 2013Q3

REPORT INFORMATION
  Report Type: Report from Study
  Country: CA (occurrence: CA)
  Receive Date: 20130725
  Receipt Date: 20130910
  Transmission Date: 20140515
  Serious: Yes (Death, Life-Threatening, Hospitalization)
  Sender: FDA-Public Use
  Company Number: CA-ROCHE-1252847

PATIENT
  Age: 54 Year
  Sex: Female

DRUGS (4)
  1. HERCEPTIN [Suspect]
     Indication: BREAST CANCER METASTATIC
     Route: 042
     Dates: start: 2010
  2. XELODA [Suspect]
     Indication: BREAST CANCER
     Route: 048
     Dates: start: 201210
  3. FENTANYL PATCH [Concomitant]
     Route: 062
  4. TYLENOL #3 (CANADA) [Concomitant]
     Dosage: AS REQUIRED
     Route: 065

REACTIONS (3)
  - Disease progression [Fatal]
  - Pulmonary embolism [Not Recovered/Not Resolved]
  - Convulsion [Recovered/Resolved]
